FAERS Safety Report 21762963 (Version 3)
Quarter: 2023Q1

REPORT INFORMATION
  Report Type: Report from Study
  Country: US (occurrence: US)
  Receive Date: 20221221
  Receipt Date: 20230301
  Transmission Date: 20230418
  Serious: Yes (Other)
  Sender: FDA-Public Use
  Company Number: US-ABBVIE-4212124

PATIENT
  Age: 49 Year
  Sex: Male

DRUGS (3)
  1. HUMIRA [Suspect]
     Active Substance: ADALIMUMAB
     Indication: Colitis ulcerative
     Dosage: CITRATE FREE?FORM STRENGTH- 40 MG
     Route: 058
     Dates: start: 20221215
  2. HUMIRA [Suspect]
     Active Substance: ADALIMUMAB
     Dosage: CITRATE FREE
     Route: 058
     Dates: start: 20220317
  3. HUMIRA [Suspect]
     Active Substance: ADALIMUMAB
     Dosage: CITRATE FREE
     Route: 058

REACTIONS (8)
  - Polypectomy [Unknown]
  - Psoriasis [Not Recovered/Not Resolved]
  - Intestinal polyp [Unknown]
  - Lower respiratory tract infection [Unknown]
  - Sinus disorder [Recovering/Resolving]
  - Productive cough [Unknown]
  - Chromaturia [Unknown]
  - Polyp [Unknown]

NARRATIVE: CASE EVENT DATE: 20220324
